FAERS Safety Report 6979367 (Version 6)
Quarter: 2016Q3

REPORT INFORMATION
  Report Type: Report from Study
  Country: ES (occurrence: ES)
  Receive Date: 20090428
  Receipt Date: 20160928
  Transmission Date: 20161109
  Serious: Yes (Death, Other)
  Sender: FDA-Public Use
  Company Number: ES-CELGENEUS-144-20785-09042039

PATIENT

DRUGS (4)
  1. THALIDOMIDE [Suspect]
     Active Substance: THALIDOMIDE
     Indication: PLASMA CELL MYELOMA
     Dosage: 100 MILLIGRAM
     Route: 048
     Dates: start: 200604
  2. BORTEZOMIB [Concomitant]
     Active Substance: BORTEZOMIB
     Indication: PLASMA CELL MYELOMA
     Route: 041
     Dates: start: 200604
  3. BORTEZOMIB [Concomitant]
     Active Substance: BORTEZOMIB
     Route: 041
  4. PREDNISONE. [Concomitant]
     Active Substance: PREDNISONE
     Indication: PLASMA CELL MYELOMA
     Route: 065
     Dates: start: 200604

REACTIONS (19)
  - Arrhythmia supraventricular [Unknown]
  - Cardiac failure [Unknown]
  - Infection [Unknown]
  - Deep vein thrombosis [Unknown]
  - Death [Fatal]
  - Neoplasm [Unknown]
  - Embolism [Unknown]
  - Neutropenia [Unknown]
  - Hypotension [Unknown]
  - Anaemia [Unknown]
  - Disease progression [Unknown]
  - Thrombocytopenia [Unknown]
  - Sepsis [Fatal]
  - Atrial fibrillation [Unknown]
  - Neuropathy peripheral [Unknown]
  - Cardiac disorder [Fatal]
  - Atrioventricular block [Unknown]
  - Myocardial infarction [Unknown]
  - Gastrointestinal toxicity [Unknown]
